FAERS Safety Report 7581552-X (Version None)
Quarter: 2011Q2

REPORT INFORMATION
  Report Type: 
  Country: None (occurrence: None)
  Receive Date: 20110629
  Receipt Date: 20110622
  Transmission Date: 20111010
  Serious: Yes (Life-Threatening, Hospitalization, Other)
  Sender: FDA-Public Use
  Company Number: PHHY2011FR49147

PATIENT
  Age: 48 Year
  Sex: Female
  Weight: 70 kg

DRUGS (9)
  1. ACTONEL [Concomitant]
  2. CALCIPARINE [Concomitant]
  3. FOLIC ACID [Concomitant]
  4. ILARIS [Suspect]
     Indication: STILL'S DISEASE ADULT ONSET
     Dosage: 150 MG, UNK
     Dates: start: 20110215
  5. ILARIS [Suspect]
     Dates: start: 20110412
  6. CETIRIZINE HCL [Concomitant]
  7. METHOTREXATE [Concomitant]
  8. OXYCONTIN [Concomitant]
  9. OXYCODONE HCL [Concomitant]

REACTIONS (28)
  - HISTIOCYTOSIS HAEMATOPHAGIC [None]
  - RENAL FAILURE [None]
  - MURPHY'S SIGN POSITIVE [None]
  - CONFUSIONAL STATE [None]
  - ABDOMINAL PAIN UPPER [None]
  - ARTHRALGIA [None]
  - GRAND MAL CONVULSION [None]
  - DYSPNOEA [None]
  - HEPATIC FAILURE [None]
  - HYPERCREATININAEMIA [None]
  - NAUSEA [None]
  - THROMBOCYTOPENIA [None]
  - TACHYCARDIA [None]
  - CONVULSION [None]
  - CYTOLYTIC HEPATITIS [None]
  - TRANSAMINASES INCREASED [None]
  - SERUM FERRITIN INCREASED [None]
  - MYCOPLASMA TEST POSITIVE [None]
  - PYREXIA [None]
  - ODYNOPHAGIA [None]
  - BLOOD LACTATE DEHYDROGENASE INCREASED [None]
  - HYPOVOLAEMIA [None]
  - JUVENILE ARTHRITIS [None]
  - RALES [None]
  - INFLAMMATION [None]
  - BLOOD TRIGLYCERIDES INCREASED [None]
  - VULVOVAGINAL MYCOTIC INFECTION [None]
  - FIBRIN D DIMER INCREASED [None]
